FAERS Safety Report 12952559 (Version 1)
Quarter: 2016Q4

REPORT INFORMATION
  Report Type: Spontaneous
  Country: AT (occurrence: AT)
  Receive Date: 20161117
  Receipt Date: 20161117
  Transmission Date: 20170207
  Serious: Yes (Other)
  Sender: FDA-Public Use
  Company Number: AT-TEVA-711153ISR

PATIENT
  Age: 3 Day
  Sex: Male
  Weight: 2.4 kg

DRUGS (1)
  1. ACICLOBENE [Suspect]
     Active Substance: ACYCLOVIR
     Route: 042
     Dates: start: 20161024, end: 20161024

REACTIONS (2)
  - Erythema [Not Recovered/Not Resolved]
  - Swelling [Not Recovered/Not Resolved]

NARRATIVE: CASE EVENT DATE: 20161024
